FAERS Safety Report 5615111-2 (Version None)
Quarter: 2008Q1

REPORT INFORMATION
  Report Type: 
  Country: None (occurrence: None)
  Receive Date: 20080206
  Receipt Date: 20070703
  Transmission Date: 20080703
  Serious: No
  Sender: FDA-Public Use
  Company Number: A0651556A

PATIENT
  Age: 77 Year
  Sex: Female

DRUGS (15)
  1. ARIXTRA [Suspect]
     Indication: DEEP VEIN THROMBOSIS
     Dosage: 7.5MCG PER DAY
     Route: 058
     Dates: start: 20070427
  2. FOLTX [Suspect]
  3. CARBIDOPA AND LEVODOPA [Concomitant]
  4. PRILOSEC [Concomitant]
  5. AMLODIPINE BESYLATE [Concomitant]
  6. POTASSIUM CHLORIDE [Concomitant]
  7. NAMENDA [Concomitant]
  8. FERROUS SULFATE TAB [Concomitant]
  9. NEURONTIN [Concomitant]
  10. FORADIL [Concomitant]
  11. PRILOSEC [Concomitant]
  12. SINEMET [Concomitant]
  13. NEURONTIN [Concomitant]
  14. FEMARA [Concomitant]
  15. ASPIRIN [Concomitant]

REACTIONS (7)
  - DECREASED APPETITE [None]
  - FATIGUE [None]
  - HAEMATOMA [None]
  - IMPAIRED HEALING [None]
  - INJECTION SITE PAIN [None]
  - PALLOR [None]
  - PHARMACEUTICAL PRODUCT COMPLAINT [None]
